FAERS Safety Report 25787934 (Version 1)
Quarter: 2025Q3

REPORT INFORMATION
  Report Type: Spontaneous
  Country: EU (occurrence: EU)
  Receive Date: 20250910
  Receipt Date: 20250910
  Transmission Date: 20251021
  Serious: Yes (Congenital Anomaly, Other)
  Sender: VIIV
  Company Number: None

PATIENT
  Sex: Male

DRUGS (2)
  1. DOLUTEGRAVIR [Suspect]
     Active Substance: DOLUTEGRAVIR
     Indication: Prophylaxis against HIV infection
     Dosage: 50 MG, QD (1 X PER DAY 1 TABLET)
     Route: 065
  2. TRUVADA [Suspect]
     Active Substance: EMTRICITABINE\TENOFOVIR DISOPROXIL FUMARATE
     Indication: Product used for unknown indication
     Dosage: 1 DF, QD (1 X PER DAY 1 TABLET) (STRENGHT 200/245 MG)
     Route: 065

REACTIONS (2)
  - Congenital musculoskeletal disorder of head and neck [Not Recovered/Not Resolved]
  - Foetal exposure during pregnancy [Unknown]
